FAERS Safety Report 6751010-0 (Version None)
Quarter: 2010Q2

REPORT INFORMATION
  Report Type: 
  Country: None (occurrence: None)
  Receive Date: 20100602
  Receipt Date: 20100518
  Transmission Date: 20101027
  Serious: Yes (Disabling)
  Sender: FDA-Public Use
  Company Number: FR-CELGENEUS-056-C5013-10051539

PATIENT
  Sex: Male
  Weight: 50.5 kg

DRUGS (6)
  1. CC-5013 [Suspect]
     Indication: MANTLE CELL LYMPHOMA
     Route: 048
     Dates: start: 20100427, end: 20100428
  2. CC-5013 [Suspect]
     Route: 048
     Dates: start: 20100126
  3. CC-5013 [Suspect]
     Route: 048
  4. RED BLOOD CELL TRANSFUSION [Concomitant]
     Route: 051
     Dates: start: 20100428, end: 20100428
  5. INNOHEP [Concomitant]
     Indication: PHLEBITIS
     Dosage: 0.6
     Route: 065
     Dates: start: 20100309
  6. NEORECORMON [Concomitant]
     Route: 058
     Dates: start: 20100426

REACTIONS (1)
  - DEAFNESS BILATERAL [None]
